FAERS Safety Report 12781243 (Version 1)
Quarter: 2016Q3

REPORT INFORMATION
  Report Type: Spontaneous
  Country: NL (occurrence: NL)
  Receive Date: 20160926
  Receipt Date: 20160926
  Transmission Date: 20161109
  Serious: Yes (Hospitalization)
  Sender: FDA-Public Use
  Company Number: NL-TEVA-694312ISR

PATIENT
  Age: 63 Year
  Sex: Male

DRUGS (46)
  1. GRANISETRON [Concomitant]
     Active Substance: GRANISETRON
     Dosage: 2 MILLIGRAM DAILY;
     Route: 048
     Dates: start: 20130314, end: 20130314
  2. PARACETAMOL [Concomitant]
     Active Substance: ACETAMINOPHEN
     Dosage: 1000 MILLIGRAM DAILY;
     Route: 048
     Dates: start: 20130411, end: 20130411
  3. PEGFILGRASTIM [Concomitant]
     Active Substance: PEGFILGRASTIM
     Dosage: 6 MILLIGRAM DAILY;
     Route: 058
     Dates: start: 20130509, end: 20130509
  4. METOCLOPRAMIDE. [Concomitant]
     Active Substance: METOCLOPRAMIDE
     Route: 048
     Dates: start: 20130621, end: 20130623
  5. METOCLOPRAMIDE. [Concomitant]
     Active Substance: METOCLOPRAMIDE
     Route: 048
     Dates: start: 20130412, end: 20130414
  6. METHOTREXATE. [Concomitant]
     Active Substance: METHOTREXATE
     Route: 042
     Dates: start: 20140807, end: 20140811
  7. DOXORUBICIN [Suspect]
     Active Substance: DOXORUBICIN
     Indication: DIFFUSE LARGE B-CELL LYMPHOMA
     Dosage: DATE OF LAST DOSE PRIOR TO SAE: 20/JUN/2013
     Dates: start: 20130620
  8. VINCRISTINE [Suspect]
     Active Substance: VINCRISTINE
     Indication: DIFFUSE LARGE B-CELL LYMPHOMA
     Dosage: DATE OF LAST DOSE PRIOR TO SAE: 20/JUN/2013
     Dates: start: 20130620
  9. GRANISETRON [Concomitant]
     Active Substance: GRANISETRON
     Dosage: 2 MILLIGRAM DAILY;
     Route: 048
     Dates: start: 20130508, end: 20130508
  10. PARACETAMOL [Concomitant]
     Active Substance: ACETAMINOPHEN
     Dosage: 1000 MILLIGRAM DAILY;
     Route: 048
     Dates: start: 20130328, end: 20130328
  11. PARACETAMOL [Concomitant]
     Active Substance: ACETAMINOPHEN
     Dosage: 1000 MILLIGRAM DAILY;
     Route: 048
     Dates: start: 20130606, end: 20130606
  12. PEGFILGRASTIM [Concomitant]
     Active Substance: PEGFILGRASTIM
     Dosage: 6 MILLIGRAM DAILY;
     Route: 058
     Dates: start: 20130621, end: 20130621
  13. METOCLOPRAMIDE. [Concomitant]
     Active Substance: METOCLOPRAMIDE
     Route: 048
     Dates: start: 20130315, end: 20130317
  14. DEXAMETHASONE. [Concomitant]
     Active Substance: DEXAMETHASONE
     Indication: LYMPHOMA
     Route: 042
     Dates: start: 20140609, end: 20140722
  15. PREDNISONE. [Suspect]
     Active Substance: PREDNISONE
     Indication: DIFFUSE LARGE B-CELL LYMPHOMA
     Dosage: DATE OF LAST DOSE PRIOR TO SAE: 20/JUN/2013
     Dates: start: 20130620
  16. CYCLOPHOSPHAMIDE. [Suspect]
     Active Substance: CYCLOPHOSPHAMIDE
     Indication: DIFFUSE LARGE B-CELL LYMPHOMA
     Dosage: DATE OF LAST DOSE PRIOR TO SAE: 20/JUN/2013
     Dates: start: 20130620
  17. PEGFILGRASTIM [Concomitant]
     Active Substance: PEGFILGRASTIM
     Dosage: 6 MILLIGRAM DAILY;
     Route: 058
     Dates: start: 20130315, end: 20130315
  18. METOCLOPRAMIDE. [Concomitant]
     Active Substance: METOCLOPRAMIDE
     Route: 048
     Dates: start: 20130607, end: 20130609
  19. METOCLOPRAMIDE. [Concomitant]
     Active Substance: METOCLOPRAMIDE
     Route: 048
     Dates: start: 20130426, end: 20130428
  20. METHOTREXATE. [Concomitant]
     Active Substance: METHOTREXATE
     Indication: LYMPHOMA
     Route: 042
     Dates: start: 20140609, end: 20140722
  21. PARACETAMOL [Concomitant]
     Active Substance: ACETAMINOPHEN
     Dosage: 1000 MILLIGRAM DAILY;
     Route: 048
     Dates: start: 20130425, end: 20130425
  22. PARACETAMOL [Concomitant]
     Active Substance: ACETAMINOPHEN
     Dosage: 1000 MILLIGRAM DAILY;
     Route: 048
     Dates: start: 20130508, end: 20130508
  23. PEGFILGRASTIM [Concomitant]
     Active Substance: PEGFILGRASTIM
     Dosage: 6 MILLIGRAM DAILY;
     Route: 058
     Dates: start: 20130329, end: 20130329
  24. ETOPOSIDE. [Concomitant]
     Active Substance: ETOPOSIDE
     Indication: LYMPHOMA
     Route: 042
     Dates: start: 20140807, end: 20140811
  25. GRANISETRON [Concomitant]
     Active Substance: GRANISETRON
     Dosage: 2 MILLIGRAM DAILY;
     Route: 048
     Dates: start: 20130425, end: 20130425
  26. GRANISETRON [Concomitant]
     Active Substance: GRANISETRON
     Dosage: 2 MILLIGRAM DAILY;
     Route: 048
     Dates: start: 20130523, end: 20130523
  27. GRANISETRON [Concomitant]
     Active Substance: GRANISETRON
     Dosage: 2 MILLIGRAM DAILY;
     Route: 048
     Dates: start: 20130620, end: 20130620
  28. PEGFILGRASTIM [Concomitant]
     Active Substance: PEGFILGRASTIM
     Dosage: 6 MILLIGRAM DAILY;
     Route: 058
     Dates: start: 20130426, end: 20130426
  29. METOCLOPRAMIDE. [Concomitant]
     Active Substance: METOCLOPRAMIDE
     Route: 048
     Dates: start: 20130524, end: 20130526
  30. CISPLATIN. [Concomitant]
     Active Substance: CISPLATIN
     Indication: LYMPHOMA
     Route: 042
     Dates: start: 20140609, end: 20140722
  31. IFOSFAMIDE. [Concomitant]
     Active Substance: IFOSFAMIDE
     Indication: LYMPHOMA
     Route: 042
     Dates: start: 20140807, end: 20140811
  32. RHUPH20/RITUXIMAB [Suspect]
     Active Substance: HYALURONIDASE (HUMAN RECOMBINANT)\RITUXIMAB
     Indication: DIFFUSE LARGE B-CELL LYMPHOMA
     Dosage: 1400 MILLIGRAM DAILY; IMP, DATE OF LAST DOSE PRIOR TO SAE: 20/JUN/2013
     Route: 058
     Dates: start: 20130620
  33. PARACETAMOL [Concomitant]
     Active Substance: ACETAMINOPHEN
     Dosage: 1000 MILLIGRAM DAILY;
     Route: 048
     Dates: start: 20130620, end: 20130620
  34. PEGFILGRASTIM [Concomitant]
     Active Substance: PEGFILGRASTIM
     Dosage: 6 MILLIGRAM DAILY;
     Route: 058
     Dates: start: 20130412, end: 20130412
  35. GRANISETRON [Concomitant]
     Active Substance: GRANISETRON
     Dosage: 2 MILLIGRAM DAILY;
     Route: 048
     Dates: start: 20130328, end: 20130328
  36. PEGFILGRASTIM [Concomitant]
     Active Substance: PEGFILGRASTIM
     Dosage: 6 MILLIGRAM DAILY;
     Route: 058
     Dates: start: 20130607, end: 20130607
  37. METOCLOPRAMIDE. [Concomitant]
     Active Substance: METOCLOPRAMIDE
     Route: 048
     Dates: start: 20130329, end: 20130331
  38. CYTARABINE. [Concomitant]
     Active Substance: CYTARABINE
     Indication: LYMPHOMA
     Route: 042
     Dates: start: 20140609, end: 20140722
  39. RITUXIMAB [Suspect]
     Active Substance: RITUXIMAB
     Indication: DIFFUSE LARGE B-CELL LYMPHOMA
     Dosage: 375 MG/M2 DAILY; IMP
     Route: 042
     Dates: start: 20130308
  40. LEVETIRACETAM. [Concomitant]
     Active Substance: LEVETIRACETAM
     Dosage: 750 MILLIGRAM DAILY;
     Dates: start: 20121025
  41. GRANISETRON [Concomitant]
     Active Substance: GRANISETRON
     Dosage: 2 MILLIGRAM DAILY;
     Route: 048
     Dates: start: 20130411, end: 20130411
  42. GRANISETRON [Concomitant]
     Active Substance: GRANISETRON
     Dosage: 2 MILLIGRAM DAILY;
     Route: 048
     Dates: start: 20130606, end: 20130606
  43. PARACETAMOL [Concomitant]
     Active Substance: ACETAMINOPHEN
     Dosage: 1000 MILLIGRAM DAILY;
     Route: 048
     Dates: start: 20130314, end: 20130314
  44. PARACETAMOL [Concomitant]
     Active Substance: ACETAMINOPHEN
     Dosage: 1000 MILLIGRAM DAILY;
     Route: 048
     Dates: start: 20130523, end: 20130523
  45. PEGFILGRASTIM [Concomitant]
     Active Substance: PEGFILGRASTIM
     Dosage: 6 MILLIGRAM DAILY;
     Route: 058
     Dates: start: 20130524, end: 20130524
  46. METOCLOPRAMIDE. [Concomitant]
     Active Substance: METOCLOPRAMIDE
     Route: 048
     Dates: start: 20130509, end: 20130511

REACTIONS (1)
  - Pneumonia [Recovered/Resolved]

NARRATIVE: CASE EVENT DATE: 20130704
